FAERS Safety Report 6033181-7 (Version None)
Quarter: 2009Q1

REPORT INFORMATION
  Report Type: 
  Country: None (occurrence: None)
  Receive Date: 20090109
  Receipt Date: 20090102
  Transmission Date: 20090719
  Serious: Yes (Hospitalization)
  Sender: FDA-Public Use
  Company Number: FR-MERCK-0812FRA00081

PATIENT
  Age: 42 Year
  Sex: Female

DRUGS (6)
  1. ISENTRESS [Suspect]
     Indication: HIV INFECTION
     Route: 048
     Dates: start: 20080501, end: 20080701
  2. ISENTRESS [Suspect]
     Route: 048
     Dates: start: 20080701
  3. ATAZANAVIR [Concomitant]
     Indication: HIV INFECTION
     Route: 048
     Dates: start: 20080501, end: 20080801
  4. CLORAZEPATE DIPOTASSIUM [Concomitant]
     Indication: ANXIETY
     Route: 048
  5. ZOLPIDEM TARTRATE [Concomitant]
     Route: 048
  6. DESLORATADINE [Concomitant]
     Indication: CHRONIC SINUSITIS
     Route: 048

REACTIONS (1)
  - PANCREATITIS [None]
